FAERS Safety Report 4304377-7 (Version None)
Quarter: 2004Q1

REPORT INFORMATION
  Report Type: 
  Country: None (occurrence: None)
  Receive Date: 20040224
  Receipt Date: 20040211
  Transmission Date: 20041129
  Serious: Yes (Other)
  Sender: FDA-Public Use
  Company Number: HQWYE954312FEB04

PATIENT
  Age: 49 Year
  Sex: Male

DRUGS (4)
  1. PROTONIX [Suspect]
     Indication: EROSIVE OESOPHAGITIS
     Dosage: 40 MG 1X PER 1 DAY, ORAL
     Route: 048
     Dates: start: 20030826, end: 20031201
  2. PROTONIX [Suspect]
     Indication: GASTROOESOPHAGEAL REFLUX DISEASE
     Dosage: 40 MG 1X PER 1 DAY, ORAL
     Route: 048
     Dates: start: 20030826, end: 20031201
  3. AMBIEN [Concomitant]
  4. XANAX [Concomitant]

REACTIONS (8)
  - BACK PAIN [None]
  - DRUG WITHDRAWAL SYNDROME [None]
  - GASTROENTERITIS VIRAL [None]
  - HEADACHE [None]
  - INFLUENZA [None]
  - PANIC ATTACK [None]
  - PARAESTHESIA [None]
  - WEIGHT DECREASED [None]
